FAERS Safety Report 4601077-0 (Version None)
Quarter: 2005Q1

REPORT INFORMATION
  Report Type: 
  Country: None (occurrence: None)
  Receive Date: 20050308
  Receipt Date: 20050224
  Transmission Date: 20050727
  Serious: Yes (Death, Hospitalization)
  Sender: FDA-Public Use
  Company Number: US-JNJFOC-20041007231

PATIENT
  Sex: Female
  Weight: 73.48 kg

DRUGS (4)
  1. REMICADE [Suspect]
     Indication: RHEUMATOID ARTHRITIS
     Route: 042
  2. METHOTREXATE [Concomitant]
  3. CELEBREX [Concomitant]
  4. FOSAMAX [Concomitant]
     Indication: OSTEOPOROSIS

REACTIONS (13)
  - ARTHRALGIA [None]
  - ARTHRITIS [None]
  - ASTHENIA [None]
  - BLOOD PRESSURE SYSTOLIC INCREASED [None]
  - COLD SWEAT [None]
  - COMMUNICATION DISORDER [None]
  - DISORIENTATION [None]
  - HEART RATE IRREGULAR [None]
  - IRON DEFICIENCY ANAEMIA [None]
  - LUNG HYPERINFLATION [None]
  - LUNG INFILTRATION [None]
  - PNEUMONIA [None]
  - RESPIRATORY FAILURE [None]
